FAERS Safety Report 7400415-3 (Version None)
Quarter: 2011Q2

REPORT INFORMATION
  Report Type: 
  Country: None (occurrence: None)
  Receive Date: 20110405
  Receipt Date: 20110405
  Transmission Date: 20111010
  Serious: Yes (Disabling, Other)
  Sender: FDA-Public Use
  Company Number: None

PATIENT
  Age: 64 Year
  Sex: Female
  Weight: 72.5755 kg

DRUGS (2)
  1. PREDNISONE 5 MG QUALITEST [Suspect]
     Indication: SARCOIDOSIS
     Dosage: 40 MG A DAY PO
     Route: 048
     Dates: start: 20100501, end: 20110326
  2. PREDNISONE 5 MG QUALITEST [Suspect]
     Indication: INFLAMMATION
     Dosage: 40 MG A DAY PO
     Route: 048
     Dates: start: 20100501, end: 20110326

REACTIONS (2)
  - GLUCOSE TOLERANCE IMPAIRED [None]
  - CATARACT [None]
